FAERS Safety Report 20711516 (Version 2)
Quarter: 2022Q3

REPORT INFORMATION
  Report Type: Spontaneous
  Country: US (occurrence: US)
  Receive Date: 20220414
  Receipt Date: 20220702
  Transmission Date: 20221026
  Serious: No
  Sender: FDA-Public Use
  Company Number: US-ALXN-A202204580

PATIENT
  Age: 50 Year
  Sex: Female
  Weight: 83.9 kg

DRUGS (1)
  1. SOLIRIS [Suspect]
     Active Substance: ECULIZUMAB
     Indication: Neuromyelitis optica spectrum disorder
     Dosage: UNK, Q2W
     Route: 065
     Dates: start: 2021

REACTIONS (2)
  - Tooth extraction [Unknown]
  - Bone graft [Unknown]

NARRATIVE: CASE EVENT DATE: 20220412
